FAERS Safety Report 8232870-3 (Version None)
Quarter: 2012Q1

REPORT INFORMATION
  Report Type: 
  Country: None (occurrence: None)
  Receive Date: 20120324
  Receipt Date: 20120312
  Transmission Date: 20120608
  Serious: Yes (Hospitalization)
  Sender: FDA-Public Use
  Company Number: JP-ASTRAZENECA-2012SE19075

PATIENT
  Age: 0 Week
  Sex: Female
  Weight: 0.7 kg

DRUGS (7)
  1. VANCOMYCIN HYDROCHLORIDE [Suspect]
     Route: 064
  2. LINEZOLID [Suspect]
     Route: 064
  3. EPIRUBICIN HYDROCHLORIDE [Suspect]
     Route: 064
  4. CYCLOPHOSPHAMIDE [Suspect]
     Route: 064
  5. MEROPENEM [Suspect]
     Route: 064
  6. TAZOBACTAM SODIUM/PIPERACILLIN SODIUM [Suspect]
     Route: 064
  7. SULBACTAM SODIUM/AMPICILLIN SODIUM [Suspect]
     Route: 064

REACTIONS (1)
  - PREMATURE BABY [None]
